FAERS Safety Report 4747166-1 (Version None)
Quarter: 2005Q3

REPORT INFORMATION
  Report Type: 
  Country: None (occurrence: None)
  Receive Date: 20050815
  Receipt Date: 20050318
  Transmission Date: 20060218
  Serious: Yes (Hospitalization)
  Sender: FDA-Public Use
  Company Number: MEDI-0003038

PATIENT
  Age: 9 Month
  Sex: Female
  Weight: 8.1647 kg

DRUGS (7)
  1. SYNAGIS [Suspect]
     Indication: ANTIVIRAL PROPHYLAXIS
     Dosage: 124 MG, 1 IN 30 D, INTRAMUSCULAR
     Route: 030
     Dates: start: 20041103, end: 20050119
  2. SYNAGIS [Suspect]
     Dosage: 1 IN 30 D, INTRAMUSCULAR
     Dates: start: 20041103
  3. SYNAGIS [Suspect]
     Dosage: 1 IN 30 D, INTRAMUSCULAR
     Dates: start: 20041208
  4. SYNAGIS [Suspect]
     Dosage: 1 IN 30 D, INTRAMUSCULAR
     Dates: start: 20050216
  5. XOPENEX [Concomitant]
  6. PULMICORT [Concomitant]
  7. ORAPRED (PREDNISOLONE) [Concomitant]

REACTIONS (1)
  - RESPIRATORY SYNCYTIAL VIRUS INFECTION [None]
